FAERS Safety Report 7258101-9 (Version None)
Quarter: 2011Q1

REPORT INFORMATION
  Report Type: 
  Country: None (occurrence: None)
  Receive Date: 20110129
  Receipt Date: 20100831
  Transmission Date: 20110831
  Serious: No
  Sender: FDA-Public Use
  Company Number: US-ABBOTT-10P-163-0657681-00

PATIENT
  Sex: Female
  Weight: 58.566 kg

DRUGS (13)
  1. FLEXERIL [Concomitant]
     Indication: PRODUCT USED FOR UNKNOWN INDICATION
  2. SAVELLA [Concomitant]
     Indication: FIBROMYALGIA
  3. METOPROLOL [Concomitant]
     Indication: PRODUCT USED FOR UNKNOWN INDICATION
  4. APADA [Concomitant]
     Indication: CONSTIPATION
     Dosage: DAILY AT HOUR OF SLEEP
     Route: 048
  5. HUMIRA [Suspect]
     Indication: RHEUMATOID ARTHRITIS
     Route: 058
     Dates: start: 20100401
  6. METHOTREXATE [Concomitant]
     Indication: PRODUCT USED FOR UNKNOWN INDICATION
  7. PREVACID [Concomitant]
     Indication: GASTROOESOPHAGEAL REFLUX DISEASE
  8. ZEGERID [Concomitant]
     Indication: GASTROOESOPHAGEAL REFLUX DISEASE
  9. PROVIGIL [Concomitant]
     Indication: PROPHYLAXIS
  10. PREDNISONE [Concomitant]
     Indication: PRODUCT USED FOR UNKNOWN INDICATION
     Dosage: 1IN 2 DAYS- WEANING OFF
     Route: 048
     Dates: start: 20090101
  11. TRAMADOL HCL [Concomitant]
     Indication: PRODUCT USED FOR UNKNOWN INDICATION
     Dosage: AT HOUR OF SLEEP AS NEEDED
     Route: 048
  12. PROVIGIL [Concomitant]
     Indication: SOMNOLENCE
  13. FOLIC ACID [Concomitant]
     Indication: NAUSEA

REACTIONS (6)
  - WEIGHT INCREASED [None]
  - INJECTION SITE HAEMORRHAGE [None]
  - BARRETT'S OESOPHAGUS [None]
  - DEVICE MALFUNCTION [None]
  - DRUG DOSE OMISSION [None]
  - INJECTION SITE PAIN [None]
